FAERS Safety Report 24337871 (Version 6)
Quarter: 2024Q4

REPORT INFORMATION
  Report Type: Spontaneous
  Country: US (occurrence: US)
  Receive Date: 20240919
  Receipt Date: 20241108
  Transmission Date: 20250114
  Serious: Yes (Other)
  Sender: BLUEPRINT MEDICINES
  Company Number: US-Blueprint Medicines Corporation-4774

PATIENT
  Sex: Female

DRUGS (3)
  1. AYVAKIT [Suspect]
     Active Substance: AVAPRITINIB
     Indication: Systemic mastocytosis
     Route: 065
     Dates: start: 20240827
  2. AYVAKIT [Suspect]
     Active Substance: AVAPRITINIB
     Indication: Diffuse cutaneous mastocytosis
     Route: 065
     Dates: start: 20240827
  3. AYVAKIT [Suspect]
     Active Substance: AVAPRITINIB
     Indication: Indolent systemic mastocytosis

REACTIONS (23)
  - Corneal dystrophy [Unknown]
  - Dry eye [Unknown]
  - Eye pain [Unknown]
  - Dry mouth [Unknown]
  - Abdominal pain [Unknown]
  - Bone pain [Unknown]
  - Nausea [Unknown]
  - Weight increased [Unknown]
  - Insomnia [Unknown]
  - Joint stiffness [Unknown]
  - Anxiety [Unknown]
  - Oropharyngeal pain [Unknown]
  - Photosensitivity reaction [Unknown]
  - Dizziness [Unknown]
  - Asthenia [Unknown]
  - Feeling abnormal [Unknown]
  - Pain [Recovered/Resolved]
  - Fatigue [Unknown]
  - Gastrointestinal disorder [Unknown]
  - Eye disorder [Unknown]
  - Adverse drug reaction [Unknown]
  - Anger [Unknown]
  - Histamine abnormal [Unknown]
